FAERS Safety Report 11070413 (Version 1)
Quarter: 2015Q2

REPORT INFORMATION
  Report Type: Spontaneous
  Country: FR (occurrence: FR)
  Receive Date: 20150427
  Receipt Date: 20150427
  Transmission Date: 20150821
  Serious: Yes (Hospitalization)
  Sender: FDA-Public Use
  Company Number: PHHY2015FR048960

PATIENT
  Age: 59 Year
  Sex: Female

DRUGS (5)
  1. ARANESP [Concomitant]
     Active Substance: DARBEPOETIN ALFA
     Dosage: 1 DF, QW
     Route: 058
     Dates: start: 20150326
  2. SEROPLEX [Suspect]
     Active Substance: ESCITALOPRAM OXALATE
     Indication: DEPRESSION
     Dosage: 1 DF, QD
     Route: 048
     Dates: end: 20150328
  3. BROMAZEPAM [Concomitant]
     Active Substance: BROMAZEPAM
  4. EXJADE [Suspect]
     Active Substance: DEFERASIROX
     Indication: IRON OVERLOAD
     Dosage: 1 DF, QW3
     Route: 048
     Dates: start: 20150303, end: 20150328
  5. GLUCIDION [Concomitant]
     Active Substance: GLUCOSE, LIQUID\POTASSIUM CHLORIDE\SODIUM CHLORIDE
     Route: 041
     Dates: start: 20150325

REACTIONS (4)
  - Transaminases increased [Unknown]
  - Leukopenia [Recovering/Resolving]
  - Gamma-glutamyltransferase increased [Unknown]
  - Thrombocytopenia [Recovering/Resolving]

NARRATIVE: CASE EVENT DATE: 20150328
